FAERS Safety Report 21680707 (Version 2)
Quarter: 2022Q4

REPORT INFORMATION
  Report Type: Spontaneous
  Country: US (occurrence: US)
  Receive Date: 20221205
  Receipt Date: 20221212
  Transmission Date: 20230112
  Serious: Yes (Hospitalization, Other)
  Sender: FDA-Public Use
  Company Number: US-HORIZON THERAPEUTICS-HZN-2022-009267

PATIENT

DRUGS (2)
  1. RAYOS [Suspect]
     Active Substance: PREDNISONE
     Indication: Connective tissue disorder
     Dosage: 40 MG DAILY FOR A YEAR, EVERY 1 DAY
     Route: 065
     Dates: start: 201411, end: 201511
  2. UNSPECIFIED INGREDIENT [Concomitant]
     Active Substance: UNSPECIFIED INGREDIENT
     Indication: Asthma
     Dosage: TAKING BOTH INHALED AND ORAL GLUCOCORTICOIDS AS NEEDED

REACTIONS (3)
  - Atypical femur fracture [Unknown]
  - Femur fracture [Unknown]
  - Off label use [Unknown]
